FAERS Safety Report 7944534-1 (Version None)
Quarter: 2011Q4

REPORT INFORMATION
  Report Type: 
  Country: None (occurrence: None)
  Receive Date: 20111114
  Receipt Date: 20110817
  Transmission Date: 20120403
  Serious: No
  Sender: FDA-Public Use
  Company Number: 1000022546

PATIENT
  Age: 71 Year
  Sex: Female

DRUGS (5)
  1. SAVELLA [Suspect]
     Indication: FIBROMYALGIA
     Dosage: 12.5 MG (12.5 MG, 1 IN 1 D), ORAL
     Route: 048
     Dates: start: 20110701, end: 20110701
  2. SAVELLA [Suspect]
     Indication: FIBROMYALGIA
     Dosage: 50 MG (25 MG, 2 IN 1 D), ORAL
     Route: 048
     Dates: start: 20110804, end: 20110801
  3. SAVELLA [Suspect]
     Indication: FIBROMYALGIA
     Dosage: 12.5 MG AM; 25 MG PM, ORAL
     Route: 048
     Dates: start: 20110701, end: 20110701
  4. BIOIDENTICAL HORMONES (PROGESTERONE, ESTROGEN) (PROGESTERONE, ESTROGEN [Concomitant]
  5. TESTOSTERONE (TESTOSTERONE) (CREAM) (TESTOSTERONE) [Concomitant]

REACTIONS (5)
  - PALPITATIONS [None]
  - NAUSEA [None]
  - FLUSHING [None]
  - SKIN REACTION [None]
  - RASH [None]
